FAERS Safety Report 18935269 (Version 3)
Quarter: 2022Q1

REPORT INFORMATION
  Report Type: Spontaneous
  Country: US (occurrence: US)
  Receive Date: 20210224
  Receipt Date: 20220209
  Transmission Date: 20220423
  Serious: No
  Sender: FDA-Public Use
  Company Number: US-HRARD-202000700

PATIENT
  Sex: Female
  Weight: 52.2 kg

DRUGS (14)
  1. MITOTANE [Suspect]
     Active Substance: MITOTANE
     Route: 048
     Dates: start: 20201118
  2. KORLYM [Suspect]
     Active Substance: MIFEPRISTONE
     Dates: start: 202003
  3. ALENDRONATE SODIUM [Concomitant]
     Active Substance: ALENDRONATE SODIUM
  4. KLOR-CON [Concomitant]
     Active Substance: POTASSIUM CHLORIDE
  5. MAGNESIUM OXIDE [Concomitant]
     Active Substance: MAGNESIUM OXIDE
  6. MELOXICAM [Concomitant]
     Active Substance: MELOXICAM
  7. ATORVASTATIN [Concomitant]
     Active Substance: ATORVASTATIN
  8. METFORMIN [Concomitant]
     Active Substance: METFORMIN HYDROCHLORIDE
  9. LISINOPRIL [Concomitant]
     Active Substance: LISINOPRIL
  10. FUROSEMIDE [Concomitant]
     Active Substance: FUROSEMIDE
  11. DEXAMETHASONE [Concomitant]
     Active Substance: DEXAMETHASONE
  12. Nystat/Traim cre [Concomitant]
  13. ONDANSETRON [Concomitant]
     Active Substance: ONDANSETRON
  14. SPIRONOLACTONE [Concomitant]
     Active Substance: SPIRONOLACTONE

REACTIONS (3)
  - Blood potassium increased [Unknown]
  - Gait inability [Unknown]
  - Pruritus [Not Recovered/Not Resolved]

NARRATIVE: CASE EVENT DATE: 20200101
